FAERS Safety Report 7764503-4 (Version None)
Quarter: 2011Q3

REPORT INFORMATION
  Report Type: 
  Country: None (occurrence: None)
  Receive Date: 20110921
  Receipt Date: 20110908
  Transmission Date: 20111222
  Serious: Yes (Hospitalization)
  Sender: FDA-Public Use
  Company Number: US-SANOFI-AVENTIS-2011SA060863

PATIENT
  Age: 81 Year
  Sex: Female

DRUGS (3)
  1. OPTICLICK [Suspect]
  2. LANTUS [Suspect]
     Dosage: DOSE:16 UNIT(S)
     Route: 058
  3. HUMALOG [Concomitant]

REACTIONS (3)
  - VISUAL ACUITY REDUCED [None]
  - DIABETIC KETOACIDOSIS [None]
  - RETINAL DISORDER [None]
